FAERS Safety Report 5557178-6 (Version None)
Quarter: 2007Q4

REPORT INFORMATION
  Report Type: 
  Country: None (occurrence: None)
  Receive Date: 20071214
  Receipt Date: 20041201
  Transmission Date: 20080405
  Serious: Yes (Other)
  Sender: FDA-Public Use
  Company Number: DE-JNJFOC-20071101493

PATIENT
  Age: 55 Year
  Sex: Male
  Weight: 80 kg

DRUGS (2)
  1. HALOPERIDOL DECANOATE [Suspect]
     Indication: SCHIZOPHRENIA
     Dosage: DOSE: 2-5MG
     Route: 050
  2. ACE INHIBITOR [Concomitant]
     Indication: HYPERTENSION
     Route: 065

REACTIONS (1)
  - WEIGHT INCREASED [None]
